FAERS Safety Report 25445522 (Version 1)
Quarter: 2025Q2

REPORT INFORMATION
  Report Type: Spontaneous
  Country: US (occurrence: US)
  Receive Date: 20250617
  Receipt Date: 20250617
  Transmission Date: 20250716
  Serious: Yes (Other)
  Sender: CHEPLAPHARM
  Company Number: None

PATIENT
  Age: 51 Year
  Sex: Female

DRUGS (22)
  1. CAPECITABINE [Suspect]
     Active Substance: CAPECITABINE
     Indication: Invasive ductal breast carcinoma
  2. DOXORUBICIN [Suspect]
     Active Substance: DOXORUBICIN
     Indication: Subacute cutaneous lupus erythematosus
  3. CYCLOPHOSPHAMIDE [Suspect]
     Active Substance: CYCLOPHOSPHAMIDE
     Indication: Invasive ductal breast carcinoma
  4. CYCLOPHOSPHAMIDE [Suspect]
     Active Substance: CYCLOPHOSPHAMIDE
     Indication: Subacute cutaneous lupus erythematosus
  5. PACLITAXEL [Suspect]
     Active Substance: PACLITAXEL
     Indication: Invasive ductal breast carcinoma
  6. PACLITAXEL [Suspect]
     Active Substance: PACLITAXEL
     Indication: Subacute cutaneous lupus erythematosus
  7. ANASTROZOLE [Suspect]
     Active Substance: ANASTROZOLE
     Indication: Invasive ductal breast carcinoma
  8. GEMCITABINE [Suspect]
     Active Substance: GEMCITABINE
  9. EXEMESTANE [Suspect]
     Active Substance: EXEMESTANE
  10. PALBOCICLIB [Suspect]
     Active Substance: PALBOCICLIB
  11. ERIBULIN [Suspect]
     Active Substance: ERIBULIN
  12. TRASTUZUMAB [Suspect]
     Active Substance: TRASTUZUMAB
  13. TRASTUZUMAB DERUXTECAN [Suspect]
     Active Substance: TRASTUZUMAB DERUXTECAN
  14. TOPIRAMATE [Concomitant]
     Active Substance: TOPIRAMATE
  15. LEVETIRACETAM [Concomitant]
     Active Substance: LEVETIRACETAM
  16. CYCLOBENZAPRINE [Concomitant]
     Active Substance: CYCLOBENZAPRINE
  17. GABAPENTIN [Concomitant]
     Active Substance: GABAPENTIN
  18. OCRELIZUMAB [Concomitant]
     Active Substance: OCRELIZUMAB
  19. LIOTHYRONINE [Concomitant]
     Active Substance: LIOTHYRONINE
  20. FUROSEMIDE [Concomitant]
     Active Substance: FUROSEMIDE
  21. SPIRONOLACTONE [Concomitant]
     Active Substance: SPIRONOLACTONE
  22. PROPRANOLOL [Concomitant]
     Active Substance: PROPRANOLOL HYDROCHLORIDE

REACTIONS (1)
  - Lupus-like syndrome [Recovered/Resolved]
